FAERS Safety Report 5445909-5 (Version None)
Quarter: 2007Q3

REPORT INFORMATION
  Report Type: 
  Country: None (occurrence: None)
  Receive Date: 20070731
  Receipt Date: 20070511
  Transmission Date: 20080115
  Serious: Yes (Hospitalization)
  Sender: FDA-Public Use
  Company Number: US-2007-016866

PATIENT
  Age: 65 Year
  Sex: Female
  Weight: 77 kg

DRUGS (14)
  1. MAGNEVIST [Suspect]
     Indication: ARTERIOGRAM CAROTID
     Dosage: 15 ML, 1 DOSE, INTRAVENOUS
     Route: 042
     Dates: start: 20070503, end: 20070503
  2. ATENOLOL [Concomitant]
  3. NIFEDIPINE [Concomitant]
  4. LISINOPRIL [Concomitant]
  5. CARDURA /IRE/ (DOXAZOSIN MESILATE) [Concomitant]
  6. AMITRIPTYLINE HCL [Concomitant]
  7. SERTRALNE (SERTRALINE) [Concomitant]
  8. REGLAN /USA/ (METOCLOPRAMIDE HYDROCHLORIDE) [Concomitant]
  9. PEPCID [Concomitant]
  10. BENTYL [Concomitant]
  11. LASIX [Concomitant]
  12. ZAROXOLYN [Concomitant]
  13. NAPROSYN [Concomitant]
  14. METHOCARBAMOL [Concomitant]

REACTIONS (2)
  - RENAL FAILURE [None]
  - VOMITING [None]
